FAERS Safety Report 8585913 (Version 7)
Quarter: 2016Q3

REPORT INFORMATION
  Report Type: Report from Study
  Country: FR (occurrence: FR)
  Receive Date: 20120530
  Receipt Date: 20160714
  Transmission Date: 20161109
  Serious: Yes (Death, Life-Threatening, Hospitalization)
  Sender: FDA-Public Use
  Company Number: FR-PFIZER INC-2012128813

PATIENT
  Age: 44 Year
  Sex: Female
  Weight: 85 kg

DRUGS (4)
  1. ARGANOVA [Suspect]
     Active Substance: ARGATROBAN
     Indication: ANTICOAGULANT THERAPY
     Dosage: 0.5 UG/KG/MIN (2.4 ML/HOUR)
     Route: 042
     Dates: start: 20120504, end: 20120504
  2. ARGANOVA [Suspect]
     Active Substance: ARGATROBAN
     Dosage: 0.4 UG/KG/MIN (2 ML/HOUR)
     Route: 042
     Dates: start: 20120504, end: 20120505
  3. ORGARAN [Concomitant]
     Active Substance: DANAPAROID SODIUM
     Indication: ANTICOAGULANT THERAPY
     Dosage: 4000 IU, 2X/DAY
     Route: 065
     Dates: start: 2008, end: 20120503
  4. ASPEGIC [Concomitant]
     Active Substance: ASPIRIN DL-LYSINE
     Indication: ISCHAEMIC STROKE
     Dosage: 1 DF, 1X/DAY
     Route: 065
     Dates: end: 20120507

REACTIONS (3)
  - Hepatic failure [Fatal]
  - Splenic haemorrhage [Fatal]
  - Product use issue [Unknown]

NARRATIVE: CASE EVENT DATE: 20120507
